FAERS Safety Report 4735081-9 (Version None)
Quarter: 2005Q3

REPORT INFORMATION
  Report Type: 
  Country: None (occurrence: None)
  Receive Date: 20050804
  Receipt Date: 20050419
  Transmission Date: 20060218
  Serious: Yes (Hospitalization)
  Sender: FDA-Public Use
  Company Number: US-MERCK-0504USA03738

PATIENT
  Age: 49 Year
  Sex: Female
  Weight: 130 kg

DRUGS (6)
  1. VIOXX [Suspect]
     Indication: ARTHRITIS
     Route: 048
     Dates: start: 19990901, end: 20040901
  2. [THERAPY UNSPECIFIED] [Concomitant]
     Route: 065
  3. HYDROCHLOROTHIAZIDE AND TRIAMTERENE [Concomitant]
     Route: 065
  4. LOTREL [Concomitant]
     Route: 065
  5. CELEXA [Concomitant]
     Indication: DEPRESSION
     Route: 065
  6. ALTACE [Concomitant]
     Route: 065
     Dates: start: 20030101

REACTIONS (14)
  - BACK PAIN [None]
  - BLOOD CHOLESTEROL INCREASED [None]
  - BLOOD PRESSURE INCREASED [None]
  - CARDIAC MURMUR [None]
  - CEREBROVASCULAR ACCIDENT [None]
  - CHEST PAIN [None]
  - CONVULSION [None]
  - FALL [None]
  - LOSS OF CONSCIOUSNESS [None]
  - MITRAL VALVE PROLAPSE [None]
  - MYOCARDIAL INFARCTION [None]
  - OBESITY [None]
  - SLEEP APNOEA SYNDROME [None]
  - THROMBOSIS [None]
